FAERS Safety Report 22223258 (Version 1)
Quarter: 2023Q2

REPORT INFORMATION
  Report Type: Spontaneous
  Country: JP (occurrence: JP)
  Receive Date: 20230418
  Receipt Date: 20230418
  Transmission Date: 20230721
  Serious: Yes (Other)
  Sender: FDA-Public Use
  Company Number: JP-MSD-M2023-00565

PATIENT
  Age: 61 Year
  Sex: Male

DRUGS (3)
  1. KEYTRUDA [Suspect]
     Active Substance: PEMBROLIZUMAB
     Indication: Oesophageal carcinoma
     Dosage: 200 MILLIGRAM, Q3W
     Route: 041
     Dates: start: 20221221
  2. CISPLATIN [Concomitant]
     Active Substance: CISPLATIN
     Indication: Oesophageal carcinoma
     Dosage: 80 MILLIGRAM/SQ. METER, Q3W
     Route: 041
     Dates: start: 20221221, end: 20230323
  3. FLUOROURACIL [Concomitant]
     Active Substance: FLUOROURACIL
     Indication: Oesophageal carcinoma
     Dosage: 800 MILLIGRAM/SQ. METER, 5 X PER WEEK
     Route: 041
     Dates: start: 20221221, end: 20230323

REACTIONS (9)
  - Hypocalcaemic seizure [Recovered/Resolved]
  - Hypokalaemia [Recovered/Resolved]
  - Stomatitis [Recovered/Resolved]
  - Decreased appetite [Recovered/Resolved]
  - Decreased appetite [Recovered/Resolved]
  - Diarrhoea [Not Recovered/Not Resolved]
  - Hyponatraemia [Recovered/Resolved]
  - Hypomagnesaemia [Recovered/Resolved]
  - Rash [Recovered/Resolved]

NARRATIVE: CASE EVENT DATE: 20221231
